FAERS Safety Report 16465431 (Version 1)
Quarter: 2019Q2

REPORT INFORMATION
  Report Type: Spontaneous
  Country: US (occurrence: US)
  Receive Date: 20190621
  Receipt Date: 20190621
  Transmission Date: 20190711
  Serious: Yes (Other)
  Sender: FDA-Public Use
  Company Number: US-ASTRAZENECA-2019SE88238

PATIENT
  Weight: 113.4 kg

DRUGS (38)
  1. NEXIUM [Suspect]
     Active Substance: ESOMEPRAZOLE MAGNESIUM
     Route: 048
  2. MAGNESIUM [Concomitant]
     Active Substance: MAGNESIUM
  3. NIFEDIPINE. [Concomitant]
     Active Substance: NIFEDIPINE
  4. NOVOLOG [Concomitant]
     Active Substance: INSULIN ASPART
  5. AMARYL [Concomitant]
     Active Substance: GLIMEPIRIDE
  6. AMPICILLIN [Concomitant]
     Active Substance: AMPICILLIN
  7. ZAROXOLYN [Concomitant]
     Active Substance: METOLAZONE
  8. SIMVASTATIN. [Concomitant]
     Active Substance: SIMVASTATIN
  9. TERAZOSIN [Concomitant]
     Active Substance: TERAZOSIN\TERAZOSIN HYDROCHLORIDE
  10. NEXIUM 24HR [Suspect]
     Active Substance: ESOMEPRAZOLE MAGNESIUM
     Route: 048
  11. PREVACID [Suspect]
     Active Substance: LANSOPRAZOLE
     Route: 065
  12. AMBIEN [Concomitant]
     Active Substance: ZOLPIDEM TARTRATE
  13. PLAVIX [Concomitant]
     Active Substance: CLOPIDOGREL BISULFATE
  14. HUMALOG [Concomitant]
     Active Substance: INSULIN LISPRO
  15. TERAZOSIN [Concomitant]
     Active Substance: TERAZOSIN\TERAZOSIN HYDROCHLORIDE
  16. PRILOSEC [Suspect]
     Active Substance: OMEPRAZOLE MAGNESIUM
     Route: 048
     Dates: start: 20100422, end: 20141103
  17. PRILOSEC [Suspect]
     Active Substance: OMEPRAZOLE MAGNESIUM
     Route: 048
     Dates: start: 20141231
  18. ASPIRIN. [Concomitant]
     Active Substance: ASPIRIN
  19. RESTORIL [Concomitant]
     Active Substance: TEMAZEPAM
  20. KLOR-CON [Concomitant]
     Active Substance: POTASSIUM CHLORIDE
  21. GLUCOVANCE [Concomitant]
     Active Substance: GLYBURIDE\METFORMIN HYDROCHLORIDE
  22. METOLAZONE. [Concomitant]
     Active Substance: METOLAZONE
  23. PRILOSEC [Suspect]
     Active Substance: OMEPRAZOLE MAGNESIUM
     Route: 048
  24. LORAZEPAM. [Concomitant]
     Active Substance: LORAZEPAM
  25. LANTUS [Concomitant]
     Active Substance: INSULIN GLARGINE
  26. PRADAXA [Concomitant]
     Active Substance: DABIGATRAN ETEXILATE MESYLATE
  27. HYDRALAZINE [Concomitant]
     Active Substance: HYDRALAZINE HYDROCHLORIDE
  28. GABAPENTIN. [Concomitant]
     Active Substance: GABAPENTIN
  29. RANITIDINE. [Concomitant]
     Active Substance: RANITIDINE
  30. GLIMEPIRIDE. [Concomitant]
     Active Substance: GLIMEPIRIDE
  31. PRILOSEC [Suspect]
     Active Substance: OMEPRAZOLE MAGNESIUM
     Route: 048
  32. NEURONTIN [Concomitant]
     Active Substance: GABAPENTIN
  33. LISINOPRIL. [Concomitant]
     Active Substance: LISINOPRIL
  34. RANITIDINE. [Concomitant]
     Active Substance: RANITIDINE
  35. METOPROLOL TARTRATE. [Concomitant]
     Active Substance: METOPROLOL TARTRATE
  36. FUROSEMIDE. [Concomitant]
     Active Substance: FUROSEMIDE
  37. CEPHALEXIN. [Concomitant]
     Active Substance: CEPHALEXIN
  38. MINOCYCLINE [Concomitant]
     Active Substance: MINOCYCLINE\MINOCYCLINE HYDROCHLORIDE

REACTIONS (4)
  - Acute kidney injury [Unknown]
  - Nephrogenic anaemia [Unknown]
  - End stage renal disease [Unknown]
  - Chronic kidney disease [Unknown]
